FAERS Safety Report 10015071 (Version 2)
Quarter: 2014Q1

REPORT INFORMATION
  Report Type: Report from Study
  Country: NL (occurrence: NL)
  Receive Date: 20140317
  Receipt Date: 20140317
  Transmission Date: 20141002
  Serious: Yes (Death)
  Sender: FDA-Public Use
  Company Number: PHHY2013NL006469

PATIENT
  Sex: Male

DRUGS (8)
  1. ZOMETA [Suspect]
     Indication: METASTASES TO BONE
     Dosage: 4 MG/100 ML, ONCE PER 28 DAYS
     Route: 042
  2. ZOMETA [Suspect]
     Dosage: 4 MG/100 ML, ONCE PER 28 DAYS
     Route: 042
     Dates: start: 20121206
  3. ZOMETA [Suspect]
     Dosage: 4 MG/100 ML, ONCE PER 28 DAYS
     Route: 042
     Dates: start: 20121210
  4. ZOMETA [Suspect]
     Dosage: 4 MG/100 ML, ONCE PER 28 DAYS
     Route: 042
     Dates: start: 20130108, end: 20130108
  5. PREDNISOLONE [Concomitant]
     Dosage: 2 X 5, UNK
     Route: 048
  6. TAMSULOSIN [Concomitant]
     Dosage: 1 X 0.4, UNK
     Route: 048
  7. PARACETAMOL [Concomitant]
     Dosage: UNK UKN, PRN
     Route: 048
  8. MACROGOL [Concomitant]
     Dosage: UNK UKN, PRN
     Route: 048

REACTIONS (3)
  - Osteonecrosis of jaw [Fatal]
  - Tooth fracture [Fatal]
  - Inappropriate schedule of drug administration [Unknown]
